FAERS Safety Report 10879783 (Version 2)
Quarter: 2015Q2

REPORT INFORMATION
  Report Type: Report from Study
  Country: US (occurrence: US)
  Receive Date: 20150302
  Receipt Date: 20150605
  Transmission Date: 20150821
  Serious: Yes (Hospitalization)
  Sender: FDA-Public Use
  Company Number: US-VERTEX PHARMACEUTICALS-2015-000634

PATIENT
  Age: 17 Year
  Sex: Female

DRUGS (1)
  1. KALYDECO [Suspect]
     Active Substance: IVACAFTOR
     Indication: CYSTIC FIBROSIS
     Dosage: 150 MG, BID
     Route: 048
     Dates: start: 20120211

REACTIONS (3)
  - Gastrointestinal disorder [Unknown]
  - Pseudomonas infection [Unknown]
  - Constipation [Unknown]

NARRATIVE: CASE EVENT DATE: 201502
